FAERS Safety Report 10836282 (Version 4)
Quarter: 2015Q1

REPORT INFORMATION
  Report Type: Spontaneous
  Country: US (occurrence: None)
  Receive Date: 20150218
  Receipt Date: 20150330
  Transmission Date: 20150721
  Serious: Yes (Hospitalization, Other)
  Sender: FDA-Public Use
  Company Number: ADR-2015-00330

PATIENT
  Age: 42 Year
  Sex: Female

DRUGS (3)
  1. MORPHINE INTRATHECAL [Suspect]
     Active Substance: MORPHINE
  2. COMPOUNDED BACLOFEN INTRATHECAL [Suspect]
     Active Substance: BACLOFEN
     Indication: MUSCLE SPASTICITY
  3. CLONIDINE. [Suspect]
     Active Substance: CLONIDINE

REACTIONS (13)
  - Post procedural complication [None]
  - Device dislocation [None]
  - Muscle spasticity [None]
  - Hyperhidrosis [None]
  - Cerebrovascular accident [None]
  - Device occlusion [None]
  - Therapeutic product ineffective [None]
  - Device physical property issue [None]
  - Loss of consciousness [None]
  - Condition aggravated [None]
  - Confusional state [None]
  - Pyrexia [None]
  - Cerebral haemorrhage [None]
